FAERS Safety Report 6260825-7 (Version None)
Quarter: 2009Q3

REPORT INFORMATION
  Report Type: 
  Country: None (occurrence: None)
  Receive Date: 20090707
  Receipt Date: 20090625
  Transmission Date: 20100115
  Serious: Yes (Death, Hospitalization)
  Sender: FDA-Public Use
  Company Number: 2009-01873

PATIENT
  Age: 51 Year
  Sex: Male
  Weight: 52 kg

DRUGS (8)
  1. VELCADE [Suspect]
     Indication: MULTIPLE MYELOMA
     Dosage: 1 MG/M2, IV BOLUS
     Route: 040
     Dates: start: 20090420, end: 20090430
  2. CYCLOPHOSPHAMIDE [Suspect]
     Indication: MULTIPLE MYELOMA
     Dosage: 500 MG/M2, INTRAVENOUS
     Route: 042
     Dates: start: 20090420, end: 20090420
  3. DEXAMETHASONE [Suspect]
     Indication: MULTIPLE MYELOMA
     Dosage: 40 MG, INTRAVENOUS
     Route: 042
     Dates: start: 20090420, end: 20090423
  4. THALIDOMIDE [Suspect]
     Indication: MULTIPLE MYELOMA
     Dosage: 100 MG, ORAL
     Route: 048
     Dates: start: 20090411, end: 20090503
  5. LASIX [Concomitant]
  6. MESALAMINE [Concomitant]
  7. VASTAREL F (TRIMETAZIDINE HYDROCHLORIDE) [Concomitant]
  8. ASPIRIN [Concomitant]

REACTIONS (10)
  - CARDIAC AMYLOIDOSIS [None]
  - CARDIOGENIC SHOCK [None]
  - DYSPNOEA EXERTIONAL [None]
  - HYPOTENSION [None]
  - INFLAMMATORY BOWEL DISEASE [None]
  - LARGE INTESTINAL ULCER [None]
  - OEDEMA PERIPHERAL [None]
  - PERICARDIAL EFFUSION [None]
  - REFUSAL OF TREATMENT BY PATIENT [None]
  - RENAL FAILURE ACUTE [None]
